FAERS Safety Report 5474816-7 (Version None)
Quarter: 2007Q3

REPORT INFORMATION
  Report Type: 
  Country: None (occurrence: None)
  Receive Date: 20070927
  Receipt Date: 20070927
  Transmission Date: 20080115
  Serious: No
  Sender: FDA-Public Use
  Company Number: None

PATIENT
  Age: 47 Year
  Sex: Female
  Weight: 83.9154 kg

DRUGS (1)
  1. PEG-INTRON [Suspect]
     Indication: HEPATITIS C
     Dosage: 150 MCG  WEEKLY  SQ
     Route: 058
     Dates: start: 20070427, end: 20070926

REACTIONS (1)
  - PULMONARY SARCOIDOSIS [None]
